FAERS Safety Report 4444754-7 (Version None)
Quarter: 2004Q3

REPORT INFORMATION
  Report Type: 
  Country: None (occurrence: None)
  Receive Date: 20040903
  Receipt Date: 20040819
  Transmission Date: 20050211
  Serious: Yes (Hospitalization)
  Sender: FDA-Public Use
  Company Number: 04P-028-0271541-00

PATIENT
  Sex: 0

DRUGS (1)
  1. KALETRA [Suspect]

REACTIONS (2)
  - CELLULITIS [None]
  - MUSCLE ABSCESS [None]
